FAERS Safety Report 10157165 (Version 4)
Quarter: 2014Q2

REPORT INFORMATION
  Report Type: Spontaneous
  Country: US (occurrence: US)
  Receive Date: 20140507
  Receipt Date: 20140604
  Transmission Date: 20141212
  Serious: Yes (Life-Threatening, Hospitalization)
  Sender: FDA-Public Use
  Company Number: US-B.I. PHARMACEUTICALS,INC./RIDGEFIELD-2014-BI-19822BP

PATIENT
  Age: 65 Year
  Sex: Female
  Weight: 131 kg

DRUGS (15)
  1. PRADAXA [Suspect]
     Indication: ATRIAL FIBRILLATION
     Dosage: 300 MG
     Route: 048
     Dates: end: 20130404
  2. ALBUTEROL [Concomitant]
     Route: 065
  3. ASCORBIC ACID [Concomitant]
     Route: 065
  4. ASPIRIN [Concomitant]
     Route: 065
  5. BISACODYL [Concomitant]
     Route: 065
  6. CHOLECALCIFEROL [Concomitant]
     Route: 065
  7. DOFETILIDE [Concomitant]
     Route: 065
  8. FLUTICASONE/SALMETEROL [Concomitant]
     Route: 055
  9. FUROSEMIDE [Concomitant]
     Route: 065
  10. INSULIN [Concomitant]
     Route: 065
  11. LEVOTHYROXINE [Concomitant]
     Route: 065
  12. METOPROLOL [Concomitant]
     Route: 065
  13. POTASSIUM [Concomitant]
     Route: 065
  14. PRAVASTATIN [Concomitant]
     Route: 065
  15. VALSARTAN [Concomitant]
     Route: 065

REACTIONS (4)
  - Gastrointestinal haemorrhage [Recovered/Resolved]
  - Melaena [Recovered/Resolved]
  - Renal failure acute [Recovered/Resolved]
  - Asthenia [Recovered/Resolved]
